FAERS Safety Report 21264136 (Version 1)
Quarter: 2022Q3

REPORT INFORMATION
  Report Type: Spontaneous
  Country: US (occurrence: US)
  Receive Date: 20220829
  Receipt Date: 20220829
  Transmission Date: 20221026
  Serious: Yes (Hospitalization)
  Sender: FDA-Public Use
  Company Number: US-LUPIN PHARMACEUTICALS INC.-2022-10615

PATIENT
  Age: 30 Year
  Sex: Male

DRUGS (15)
  1. CLONIDINE [Suspect]
     Active Substance: CLONIDINE
     Indication: Drug withdrawal syndrome
     Dosage: UNK
     Route: 065
  2. BUPRENORPHINE [Suspect]
     Active Substance: BUPRENORPHINE
     Indication: Drug withdrawal syndrome
     Dosage: 4 MG, TID (THREE TIMES, SEPARATED BY 1 TO 2 HOURS)
     Route: 060
  3. BUPRENORPHINE [Suspect]
     Active Substance: BUPRENORPHINE
     Dosage: 4 MG, BID
     Route: 060
  4. BUPRENORPHINE [Suspect]
     Active Substance: BUPRENORPHINE
     Dosage: 16 MG, TID (THREE TIMES, SEPARATED BY 1 TO 2 HOURS)
     Route: 060
  5. DIAZEPAM [Suspect]
     Active Substance: DIAZEPAM
     Indication: Drug withdrawal syndrome
     Dosage: 20 MG
     Route: 048
  6. HALOPERIDOL [Suspect]
     Active Substance: HALOPERIDOL
     Indication: Drug withdrawal syndrome
     Dosage: 10 MG
     Route: 030
  7. NALOXONE [Concomitant]
     Active Substance: NALOXONE
     Indication: Hypopnoea
     Dosage: 0.5 MG
     Route: 042
  8. FENTANYL [Concomitant]
     Active Substance: FENTANYL
     Indication: Sedation
     Dosage: 300 MICROGRAM (TWO DOSES)
     Route: 042
  9. HYDROMORPHONE [Concomitant]
     Active Substance: HYDROMORPHONE
     Indication: Sedation
     Dosage: UNK
     Route: 042
  10. DROPERIDOL [Concomitant]
     Active Substance: DROPERIDOL
     Indication: Sedation
     Dosage: 5 MG
     Route: 042
  11. MIDAZOLAM [Concomitant]
     Active Substance: MIDAZOLAM
     Indication: Sedation
     Dosage: 5 MG, TWO DOSES
     Route: 042
  12. KETAMINE [Concomitant]
     Active Substance: KETAMINE
     Indication: Sedation
     Dosage: 100 MG, THREE DOSES
     Route: 042
  13. PROPOFOL [Concomitant]
     Active Substance: PROPOFOL
     Indication: Sedation
     Dosage: UNK
     Route: 042
  14. METHADONE [Concomitant]
     Active Substance: METHADONE HYDROCHLORIDE
     Indication: Drug withdrawal syndrome
     Dosage: 20 MILLIGRAM, QD
     Route: 048
  15. METHADONE [Concomitant]
     Active Substance: METHADONE HYDROCHLORIDE
     Dosage: 30 MILLIGRAM, QD
     Route: 048

REACTIONS (1)
  - Drug ineffective [Unknown]
